FAERS Safety Report 19436144 (Version 2)
Quarter: 2021Q2

REPORT INFORMATION
  Report Type: Report from Study
  Country: BG (occurrence: BG)
  Receive Date: 20210618
  Receipt Date: 20210629
  Transmission Date: 20210717
  Serious: Yes (Hospitalization)
  Sender: FDA-Public Use
  Company Number: BG-JNJFOC-20210630139

PATIENT
  Age: 52 Year
  Sex: Male

DRUGS (4)
  1. PONESIMOD [Suspect]
     Active Substance: PONESIMOD
     Indication: RELAPSING MULTIPLE SCLEROSIS
     Route: 048
     Dates: start: 20190417, end: 20210606
  2. BISOGAMMA [Concomitant]
     Active Substance: BISOPROLOL FUMARATE
     Indication: ISCHAEMIC HEART DISEASE PROPHYLAXIS
     Route: 048
     Dates: start: 20210606
  3. VAPRESS [Concomitant]
     Indication: ISCHAEMIC HEART DISEASE PROPHYLAXIS
     Route: 048
     Dates: start: 20210609
  4. CANDESARTAN. [Concomitant]
     Active Substance: CANDESARTAN
     Route: 065

REACTIONS (1)
  - Acute myocardial infarction [Recovered/Resolved with Sequelae]

NARRATIVE: CASE EVENT DATE: 20210606
